FAERS Safety Report 8800938 (Version 2)
Quarter: 2012Q4

REPORT INFORMATION
  Report Type: 
  Country: DE (occurrence: DE)
  Receive Date: 20120921
  Receipt Date: 20121011
  Transmission Date: 20130627
  Serious: Yes (Hospitalization)
  Sender: FDA-Public Use
  Company Number: DE-PFIZER INC-2012069190

PATIENT
  Age: 70 Year
  Sex: Male
  Weight: 89 kg

DRUGS (16)
  1. GENOTROPIN [Suspect]
     Indication: HYPOPITUITARISM
     Dosage: 0.3 UNK, 1x/day, 7 injections per week
     Dates: start: 19950425
  2. GENOTROPIN [Suspect]
     Dosage: 0.2 UNK, 1x/day, 7 injections per week
     Dates: start: 20060410
  3. GENOTROPIN [Suspect]
     Dosage: 0.3 UNK, 1x/day, 7 injections per week
     Dates: start: 20061106
  4. GENOTROPIN [Suspect]
     Dosage: 0.2 UNK, 1x/day, 7 injections per week
     Dates: start: 20070508
  5. GENOTROPIN [Suspect]
     Dosage: 0.1 UNK, 1x/day, 7 injections per week
     Dates: start: 20090909
  6. GENOTROPIN [Suspect]
     Dosage: 0.2 UNK, 1x/day, 7 injections per week
     Dates: start: 20100611
  7. AMLODIPINE [Concomitant]
     Dosage: 2.5 mg, UNK
     Dates: start: 20051124
  8. LEVOTHYROXINE [Concomitant]
     Indication: BLOOD THYROID STIMULATING HORMONE DECREASED
     Dosage: 50 ug, daily
     Dates: start: 19910501
  9. LEVOTHYROXINE [Concomitant]
     Dosage: 50 ug, daily
     Dates: start: 20020326
  10. LEVOTHYROXINE [Concomitant]
     Dosage: 100 ug, daily
     Dates: start: 20020326
  11. LEVOTHYROXINE [Concomitant]
     Dosage: 75 ug, daily
     Dates: start: 20030801
  12. TESTOSTERONE [Concomitant]
     Indication: BLOOD LUTEINISING HORMONE DECREASED
     Dosage: 250 mg, UNK
     Dates: start: 19910501
  13. TESTOSTERONE [Concomitant]
     Indication: BLOOD FOLLICLE STIMULATING HORMONE DECREASED
     Dosage: 250 mg, monthly
     Dates: start: 20020326
  14. HYDROCORTISONE [Concomitant]
     Indication: BLOOD CORTICOTROPHIN DECREASED
     Dosage: 10 mg, UNK
     Dates: start: 19910501
  15. HYDROCORTISONE [Concomitant]
     Dosage: 10 mg, daily
     Dates: start: 20020326
  16. ADALAT [Concomitant]
     Dosage: 20 mg, daily
     Dates: start: 19920801

REACTIONS (1)
  - Convulsion [Unknown]
